FAERS Safety Report 9927877 (Version 2)
Quarter: 2014Q2

REPORT INFORMATION
  Report Type: Spontaneous
  Country: FR (occurrence: None)
  Receive Date: 20140221
  Receipt Date: 20140410
  Transmission Date: 20141212
  Serious: No
  Sender: FDA-Public Use
  Company Number: B0969172A

PATIENT
  Sex: Female

DRUGS (2)
  1. PAROXETINE HYDROCHLORIDE [Suspect]
     Indication: DEPRESSION
     Dosage: SEE DOSAGE TEXT / ORAL 12 - UNKNOWN
     Route: 048
     Dates: start: 201412
  2. ROSUVASTATIN CALCIUM [Concomitant]

REACTIONS (6)
  - Tremor [None]
  - Palpitations [None]
  - Dizziness [None]
  - Dyspnoea [None]
  - Back pain [None]
  - Disease recurrence [None]
